FAERS Safety Report 13008830 (Version 2)
Quarter: 2020Q2

REPORT INFORMATION
  Report Type: Spontaneous
  Country: US (occurrence: US)
  Receive Date: 20161208
  Receipt Date: 20200609
  Transmission Date: 20200713
  Serious: Yes (Death, Hospitalization, Disabling, Other)
  Sender: FDA-Public Use
  Company Number: US-009507513-1612USA003495

PATIENT
  Sex: Female

DRUGS (2)
  1. JANUVIA [Suspect]
     Active Substance: SITAGLIPTIN PHOSPHATE
     Indication: PRODUCT USED FOR UNKNOWN INDICATION
     Dosage: UNK
     Route: 048
     Dates: start: 200710, end: 200908
  2. JANUVIA [Suspect]
     Active Substance: SITAGLIPTIN PHOSPHATE
     Indication: PRODUCT USED FOR UNKNOWN INDICATION
     Dosage: UNK
     Route: 048
     Dates: start: 20080728

REACTIONS (16)
  - Acute respiratory failure [Unknown]
  - Pleural effusion [Unknown]
  - Depressed mood [Unknown]
  - Peripheral swelling [Unknown]
  - Gout [Unknown]
  - Pancreatic carcinoma stage IV [Fatal]
  - Bile duct cancer [Fatal]
  - Blood sodium decreased [Unknown]
  - Pulmonary embolism [Unknown]
  - Escherichia urinary tract infection [Unknown]
  - Urinary tract infection enterococcal [Unknown]
  - Constipation [Unknown]
  - Urinary tract infection bacterial [Unknown]
  - Gastrointestinal motility disorder [Unknown]
  - Gastrooesophageal reflux disease [Unknown]
  - Hyperlipidaemia [Unknown]

NARRATIVE: CASE EVENT DATE: 2009
